FAERS Safety Report 15966548 (Version 6)
Quarter: 2019Q3

REPORT INFORMATION
  Report Type: Spontaneous
  Country: JP (occurrence: JP)
  Receive Date: 20190215
  Receipt Date: 20190702
  Transmission Date: 20191004
  Serious: Yes (Life-Threatening, Other)
  Sender: FDA-Public Use
  Company Number: JP-PFIZER INC-2019066568

PATIENT
  Age: 60 Year
  Sex: Male
  Weight: 61 kg

DRUGS (10)
  1. FENTANYL. [Concomitant]
     Active Substance: FENTANYL
     Indication: SEDATIVE THERAPY
     Dosage: MAXIMAL DAILY DOSE, 300 UG
     Route: 042
     Dates: start: 20180901, end: 20180913
  2. ANCARON [Suspect]
     Active Substance: AMIODARONE HYDROCHLORIDE
     Indication: VENTRICULAR FIBRILLATION
  3. ANCARON [Suspect]
     Active Substance: AMIODARONE HYDROCHLORIDE
     Indication: ARRHYTHMIA PROPHYLAXIS
     Dosage: 200 MG, 1X/DAY
     Route: 048
     Dates: start: 20180907, end: 20180909
  4. ANCARON [Suspect]
     Active Substance: AMIODARONE HYDROCHLORIDE
     Indication: VENTRICULAR FIBRILLATION
     Dosage: 300 MG, DAILY (MAINTENANCE DOSE (CONCENTRATION: 1.50MG/ML, RATE: 17ML/H))
     Route: 042
     Dates: start: 20180901, end: 20180907
  5. NORADRENALINE ACID TARTRATE ANHYDROUS [Concomitant]
     Active Substance: NOREPINEPHRINE BITARTRATE
     Indication: CIRCULATORY COLLAPSE
     Dosage: MAXIMAL DAILY DOSE, 0.32 (TO BE ADJUSTED)
     Route: 042
     Dates: start: 20180901, end: 20180904
  6. NITOROL [Concomitant]
     Active Substance: ISOSORBIDE DINITRATE
     Indication: CORONARY ARTERY DISEASE
     Dosage: MAXIMAL DAILY DOSE, 2 MG/HR (TO BE TAPERED)
     Route: 042
     Dates: start: 20180901, end: 20180905
  7. ANCARON [Suspect]
     Active Substance: AMIODARONE HYDROCHLORIDE
     Dosage: 300 MG, DAILY (MAINTENANCE CONTINUED FOR 6 DAYS FROM DAY OF ICU ADMISSION)
     Route: 042
     Dates: start: 201809
  8. ANCARON [Suspect]
     Active Substance: AMIODARONE HYDROCHLORIDE
     Indication: ARRHYTHMIA PROPHYLAXIS
     Dosage: UNK (LOADING DOSE (CONCENTRATION:1.50MG/ML, RATE: 33ML/H)
     Route: 042
     Dates: start: 20180901, end: 20180901
  9. HERBESSER [Concomitant]
     Active Substance: DILTIAZEM HYDROCHLORIDE
     Indication: CORONARY ARTERY DILATATION
     Dosage: MAXIMAL DAILY DOSE, 9 MG/HR (TO BE TAPERED)
     Route: 042
     Dates: start: 20180901
  10. NICORANDIL [Concomitant]
     Active Substance: NICORANDIL
     Indication: CORONARY ARTERY DISEASE
     Dosage: MAXIMAL DAILY DOSE, 2 MG/HR (TO BE ADJUSTED)
     Route: 042
     Dates: start: 20180901, end: 20180907

REACTIONS (6)
  - Haemoptysis [Recovered/Resolved]
  - Acute respiratory distress syndrome [Recovering/Resolving]
  - Interstitial lung disease [Recovering/Resolving]
  - PaO2/FiO2 ratio decreased [Recovered/Resolved]
  - Respiratory failure [Recovering/Resolving]
  - Hypoxia [Recovering/Resolving]

NARRATIVE: CASE EVENT DATE: 20180908
